FAERS Safety Report 14156892 (Version 1)
Quarter: 2017Q4

REPORT INFORMATION
  Report Type: Spontaneous
  Country: US (occurrence: US)
  Receive Date: 20171103
  Receipt Date: 20171103
  Transmission Date: 20180321
  Serious: Yes (Hospitalization)
  Sender: FDA-Public Use
  Company Number: US-ASTRAZENECA-2017SF10549

PATIENT
  Sex: Female
  Weight: 81.6 kg

DRUGS (4)
  1. OMEPRAZOLE. [Suspect]
     Active Substance: OMEPRAZOLE
     Indication: BARRETT^S OESOPHAGUS
     Route: 048
     Dates: start: 2006
  2. LOSARTAN. [Concomitant]
     Active Substance: LOSARTAN
     Indication: BLOOD PRESSURE ABNORMAL
     Route: 048
  3. OMEPRAZOLE. [Suspect]
     Active Substance: OMEPRAZOLE
     Indication: GASTROOESOPHAGEAL REFLUX DISEASE
     Route: 048
     Dates: start: 2006
  4. TYLENOL [Concomitant]
     Active Substance: ACETAMINOPHEN
     Indication: PAIN
     Dosage: AS REQUIRED
     Route: 048

REACTIONS (13)
  - Peripheral swelling [Unknown]
  - Off label use [Unknown]
  - Spinal column stenosis [Unknown]
  - Post procedural infection [Unknown]
  - Blood cholesterol increased [Unknown]
  - Fall [Unknown]
  - Localised infection [Unknown]
  - Atrial fibrillation [Unknown]
  - Haematoma [Unknown]
  - Intervertebral disc disorder [Unknown]
  - Rheumatoid arthritis [Unknown]
  - Tooth loss [Unknown]
  - Product use in unapproved indication [Unknown]
